FAERS Safety Report 6299340-3 (Version None)
Quarter: 2009Q3

REPORT INFORMATION
  Report Type: 
  Country: None (occurrence: None)
  Receive Date: 20090806
  Receipt Date: 20090729
  Transmission Date: 20100115
  Serious: Yes (Other)
  Sender: FDA-Public Use
  Company Number: BR-ROCHE-594626

PATIENT
  Sex: Female
  Weight: 67 kg

DRUGS (2)
  1. ROACUTAN [Suspect]
     Indication: ACNE
     Route: 048
     Dates: start: 20080401, end: 20080810
  2. MESIGYNA [Concomitant]
     Indication: CONTRACEPTION
     Dosage: STRENGTH: 50 MG+ 1 MG/1 ML
     Route: 030
     Dates: start: 20080401, end: 20080901

REACTIONS (1)
  - ABORTION SPONTANEOUS [None]
